FAERS Safety Report 8894480 (Version 1)
Quarter: 2012Q4

REPORT INFORMATION
  Report Type: 
  Country: US (occurrence: US)
  Receive Date: 20121107
  Receipt Date: 20121107
  Transmission Date: 20130627
  Serious: No
  Sender: FDA-Public Use
  Company Number: US-AMGEN-USASP2011050653

PATIENT

DRUGS (9)
  1. ENBREL [Suspect]
     Dosage: 50 mg, qwk
  2. FISH OIL [Concomitant]
  3. FOLIC ACID [Concomitant]
  4. SULFASALAZIN [Concomitant]
  5. NEXIUM                             /01479302/ [Concomitant]
  6. LIPITOR [Concomitant]
  7. PREDNISONE [Concomitant]
  8. NASONEX [Concomitant]
  9. WELLBUTRIN                         /00700502/ [Concomitant]

REACTIONS (1)
  - Drug ineffective [Not Recovered/Not Resolved]
